FAERS Safety Report 5996284-9 (Version None)
Quarter: 2008Q4

REPORT INFORMATION
  Report Type: 
  Country: None (occurrence: None)
  Receive Date: 20081212
  Receipt Date: 20081009
  Transmission Date: 20090506
  Serious: No
  Sender: FDA-Public Use
  Company Number: US-ABBOTT-08P-163-0480744-00

PATIENT
  Sex: Female

DRUGS (5)
  1. HUMIRA [Suspect]
     Indication: RHEUMATOID ARTHRITIS
     Route: 058
     Dates: start: 20080101, end: 20080701
  2. HUMIRA [Suspect]
     Route: 058
     Dates: start: 20080701, end: 20080901
  3. METHOTREXATE [Concomitant]
     Indication: DRUG USE FOR UNKNOWN INDICATION
  4. SITAGLIPTIN PHOSPHATE [Concomitant]
     Indication: DIABETES MELLITUS
  5. GLYPERIDE [Concomitant]
     Indication: DIABETES MELLITUS

REACTIONS (3)
  - DRUG INEFFECTIVE [None]
  - PAIN IN EXTREMITY [None]
  - PAINFUL RESPIRATION [None]
